FAERS Safety Report 4739885-8 (Version None)
Quarter: 2005Q3

REPORT INFORMATION
  Report Type: 
  Country: None (occurrence: None)
  Receive Date: 20050729
  Receipt Date: 20050323
  Transmission Date: 20060218
  Serious: Yes (Other)
  Sender: FDA-Public Use
  Company Number: 2005S1001486

PATIENT
  Sex: Female

DRUGS (5)
  1. APOMORPHINE HYDROCHLORIDE (APOMORPHINE HYDROCHLORIDE) [Suspect]
     Indication: PARKINSON'S DISEASE
     Dosage: SC
  2. CABERGOLINE [Concomitant]
  3. ENTACAPONE [Concomitant]
  4. LEVODOPA/BENSERAZIDE HYDROCHLORIDE [Concomitant]
  5. . [Concomitant]

REACTIONS (2)
  - ABDOMINAL PAIN UPPER [None]
  - PAIN IN EXTREMITY [None]
